FAERS Safety Report 13826213 (Version 2)
Quarter: 2017Q3

REPORT INFORMATION
  Report Type: Spontaneous
  Country: KZ (occurrence: KZ)
  Receive Date: 20170802
  Receipt Date: 20170822
  Transmission Date: 20171127
  Serious: No
  Sender: FDA-Public Use
  Company Number: KZ-REGENERON PHARMACEUTICALS, INC.-2017-19639

PATIENT

DRUGS (1)
  1. EYLEA [Suspect]
     Active Substance: AFLIBERCEPT
     Indication: NEOVASCULAR AGE-RELATED MACULAR DEGENERATION
     Dosage: UNK, Q1MON (TOTAL OF 3 INJECTIONS)
     Route: 031
     Dates: start: 2017, end: 2017

REACTIONS (1)
  - Unintentional use for unapproved indication [Unknown]
